FAERS Safety Report 8277363-2 (Version None)
Quarter: 2012Q2

REPORT INFORMATION
  Report Type: 
  Country: None (occurrence: None)
  Receive Date: 20120412
  Receipt Date: 20120403
  Transmission Date: 20120825
  Serious: Yes (Other)
  Sender: FDA-Public Use
  Company Number: GB-ASTRAZENECA-2012SE22048

PATIENT
  Age: 79 Year
  Sex: Female
  Weight: 74.1 kg

DRUGS (7)
  1. BENDROFLUMETHIAZIDE [Concomitant]
     Dates: start: 20111230, end: 20120313
  2. ENALAPRIL MALEATE [Concomitant]
     Dates: start: 20111206, end: 20120313
  3. BETAMETHASONE VALERATE [Concomitant]
  4. ROSUVASTATIN [Suspect]
     Route: 048
     Dates: start: 20111206
  5. ASPIRIN [Concomitant]
  6. BISOPROLOL FUMARATE [Concomitant]
  7. ACYCLOVIR [Concomitant]

REACTIONS (1)
  - COUGH [None]
